FAERS Safety Report 15121505 (Version 3)
Quarter: 2018Q3

REPORT INFORMATION
  Report Type: Spontaneous
  Country: CA (occurrence: CA)
  Receive Date: 20180709
  Receipt Date: 20180906
  Transmission Date: 20181010
  Serious: Yes (Hospitalization, Other)
  Sender: FDA-Public Use
  Company Number: CA-CELLTRION INC.-2018CA020899

PATIENT

DRUGS (5)
  1. INFLECTRA [Suspect]
     Active Substance: INFLIXIMAB-DYYB
     Indication: CROHN^S DISEASE
     Dosage: (420MG),  (EVERY 0,2,6 WEEKS THEN     EVERY 8 WEEKS)
     Route: 042
     Dates: start: 20180615
  2. INFLECTRA [Suspect]
     Active Substance: INFLIXIMAB-DYYB
     Dosage: 420 MG, (SECOND LOADING DOSE)
     Route: 042
     Dates: start: 20180618
  3. INFLECTRA [Suspect]
     Active Substance: INFLIXIMAB-DYYB
     Dosage: 420 MG, CYCLIC EVERY 0,2,6 WEEKS THEN EVERY 8 WEEKS)
     Route: 042
     Dates: start: 20180712
  4. INFLECTRA [Suspect]
     Active Substance: INFLIXIMAB-DYYB
     Indication: COLITIS ULCERATIVE
     Dosage: (420MG),  (EVERY 0,2,6 WEEKS THEN     EVERY 8 WEEKS)
     Route: 042
     Dates: start: 20180531
  5. INFLECTRA [Suspect]
     Active Substance: INFLIXIMAB-DYYB
     Dosage: 420 MG, CYCLIC EVERY 0,2,6 WEEKS THEN EVERY 8 WEEKS)
     Route: 042
     Dates: start: 20180629

REACTIONS (10)
  - Inappropriate schedule of drug administration [Unknown]
  - Condition aggravated [Not Recovered/Not Resolved]
  - Depression [Unknown]
  - Drug prescribing error [Unknown]
  - Cardiac disorder [Unknown]
  - Crohn^s disease [Unknown]
  - Malaise [Unknown]
  - Hypertension [Unknown]
  - Drug ineffective [Not Recovered/Not Resolved]
  - Condition aggravated [Unknown]

NARRATIVE: CASE EVENT DATE: 20180615
